FAERS Safety Report 20589396 (Version 1)
Quarter: 2022Q1

REPORT INFORMATION
  Report Type: Spontaneous
  Country: US (occurrence: None)
  Receive Date: 20220314
  Receipt Date: 20220314
  Transmission Date: 20220423
  Serious: Yes (Hospitalization)
  Sender: FDA-Public Use
  Company Number: None

PATIENT
  Age: 38 Year
  Sex: Female
  Weight: 83.1 kg

DRUGS (7)
  1. ONCASPAR [Suspect]
     Active Substance: PEGASPARGASE
     Dates: end: 20220205
  2. DAUNORUBICIN [Suspect]
     Active Substance: DAUNORUBICIN
     Dates: end: 20220216
  3. DEXAMETHASONE [Suspect]
     Active Substance: DEXAMETHASONE
     Dates: end: 20220223
  4. VINCRISTINE SULFATE [Suspect]
     Active Substance: VINCRISTINE SULFATE
     Dates: end: 20220216
  5. CYTARABINE [Suspect]
     Active Substance: CYTARABINE
     Dates: end: 20220202
  6. METHOTREXATE [Suspect]
     Active Substance: METHOTREXATE
     Dates: end: 20220308
  7. ENTECAVIR [Concomitant]
     Active Substance: ENTECAVIR

REACTIONS (6)
  - Hepatic steatosis [None]
  - Blood bilirubin increased [None]
  - Hepatic function abnormal [None]
  - Infection [None]
  - Hepatitis B [None]
  - Platelet count decreased [None]

NARRATIVE: CASE EVENT DATE: 20220224
